FAERS Safety Report 24371718 (Version 4)
Quarter: 2024Q4

REPORT INFORMATION
  Report Type: Spontaneous
  Country: US (occurrence: US)
  Receive Date: 20240927
  Receipt Date: 20241111
  Transmission Date: 20250115
  Serious: No
  Sender: PFIZER
  Company Number: US-PFIZER INC-202400262288

PATIENT
  Age: 7 Year
  Sex: Female

DRUGS (1)
  1. GENOTROPIN [Suspect]
     Active Substance: SOMATROPIN
     Dosage: 1 MG 6 DAYS PER WEEK
     Dates: start: 20240831

REACTIONS (2)
  - Drug dose omission by device [Unknown]
  - Needle issue [Unknown]

NARRATIVE: CASE EVENT DATE: 20240920
